FAERS Safety Report 9010749 (Version 1)
Quarter: 2013Q1

REPORT INFORMATION
  Report Type: Spontaneous
  Country: US (occurrence: US)
  Receive Date: 20130109
  Receipt Date: 20130109
  Transmission Date: 20140127
  Serious: Yes (Hospitalization, Other)
  Sender: FDA-Public Use
  Company Number: US-009507513-1301USA001553

PATIENT
  Age: 32 Year
  Sex: Male

DRUGS (3)
  1. MONTELUKAST SODIUM [Suspect]
  2. CETIRIZINE HYDROCHLORIDE \ PSEUDOEPHEDRINE HYDROCHLORIDE [Suspect]
  3. LEVETIRACETAM [Suspect]

REACTIONS (2)
  - Ischaemia [Unknown]
  - Electrocardiogram T wave inversion [Unknown]
